FAERS Safety Report 8805193 (Version 2)
Quarter: 2012Q4

REPORT INFORMATION
  Report Type: 
  Country: US (occurrence: US)
  Receive Date: 20120924
  Receipt Date: 20121004
  Transmission Date: 20130627
  Serious: Yes (Other)
  Sender: FDA-Public Use
  Company Number: US-PFIZER INC-2012235091

PATIENT
  Age: 41 Year
  Sex: Female
  Weight: 79.37 kg

DRUGS (8)
  1. LYRICA [Suspect]
     Indication: FIBROMYALGIA
     Dosage: 75 mg, daily at night
     Dates: start: 201011, end: 201102
  2. XANAX [Suspect]
     Indication: ANXIETY
     Dosage: UNK
  3. XANAX [Suspect]
     Indication: PANIC ATTACK
     Dosage: 0.25mg half a tablet as needed three times a day
  4. PAXIL [Suspect]
     Indication: GENERALISED ANXIETY DISORDER
     Dosage: 20 mg, Daily
  5. PAXIL [Suspect]
     Dosage: tapering off slowly
  6. CYMBALTA [Suspect]
     Indication: FIBROMYALGIA
     Dosage: UNK
  7. ENALAPRIL MALEATE [Concomitant]
     Indication: HYPERTENSION
     Dosage: 5 mg, 2x/day
  8. NEXIUM [Concomitant]
     Dosage: UNK

REACTIONS (3)
  - Withdrawal syndrome [Recovering/Resolving]
  - Hormone level abnormal [Unknown]
  - Somnolence [Not Recovered/Not Resolved]
